FAERS Safety Report 4429892-7 (Version None)
Quarter: 2004Q3

REPORT INFORMATION
  Report Type: 
  Country: None (occurrence: None)
  Receive Date: 20040817
  Receipt Date: 20040802
  Transmission Date: 20050211
  Serious: Yes (Hospitalization)
  Sender: FDA-Public Use
  Company Number: 200462

PATIENT
  Age: 33 Year
  Sex: Female

DRUGS (3)
  1. AVONEX [Suspect]
     Indication: MULTIPLE SCLEROSIS
     Dosage: 30 MCG QW IM
     Dates: start: 20011005
  2. AVONEX [Suspect]
     Indication: MULTIPLE SCLEROSIS
     Dosage: 30 MCG QW IM
     Dates: start: 20040501
  3. COPAXONE [Concomitant]

REACTIONS (3)
  - CATHETER SITE HAEMORRHAGE [None]
  - MENINGITIS ASEPTIC [None]
  - NUCLEAR MAGNETIC RESONANCE IMAGING ABNORMAL [None]
